FAERS Safety Report 14026146 (Version 2)
Quarter: 2017Q4

REPORT INFORMATION
  Report Type: Spontaneous
  Country: US (occurrence: US)
  Receive Date: 20170929
  Receipt Date: 20171106
  Transmission Date: 20180321
  Serious: Yes (Death, Other)
  Sender: FDA-Public Use
  Company Number: US-ELI_LILLY_AND_COMPANY-US201709010751

PATIENT
  Age: 75 Year
  Sex: Female
  Weight: 71 kg

DRUGS (12)
  1. PULMICORT TURBUHALER [Concomitant]
     Active Substance: BUDESONIDE
  2. RANITIDINE HYDROCHLORIDE. [Concomitant]
     Active Substance: RANITIDINE HYDROCHLORIDE
  3. SYNTHROID [Concomitant]
     Active Substance: LEVOTHYROXINE SODIUM
  4. MULTIVITAMIN                       /00097801/ [Concomitant]
     Active Substance: VITAMINS
  5. ASPIRIN                            /00002701/ [Concomitant]
     Active Substance: ASPIRIN
  6. TOPROL XL [Concomitant]
     Active Substance: METOPROLOL SUCCINATE
  7. K-DUR [Concomitant]
     Active Substance: POTASSIUM CHLORIDE
  8. NOVODILTAZEM [Concomitant]
  9. OXYGEN. [Concomitant]
     Active Substance: OXYGEN
  10. CRESOL [Concomitant]
     Active Substance: CRESOL
  11. ADCIRCA [Suspect]
     Active Substance: TADALAFIL
     Indication: PULMONARY HYPERTENSION
     Dosage: 40 MG, DAILY
     Route: 048
     Dates: start: 20160212
  12. DEMADEX [Concomitant]
     Active Substance: TORSEMIDE

REACTIONS (6)
  - Abdominal pain upper [Unknown]
  - Dizziness [Unknown]
  - Nausea [Unknown]
  - Acute respiratory failure [Fatal]
  - Syncope [Unknown]
  - Abdominal pain [Unknown]

NARRATIVE: CASE EVENT DATE: 20170906
